FAERS Safety Report 13772281 (Version 2)
Quarter: 2017Q3

REPORT INFORMATION
  Report Type: Report from Study
  Country: JP (occurrence: JP)
  Receive Date: 20170720
  Receipt Date: 20170906
  Transmission Date: 20171127
  Serious: Yes (Death, Other)
  Sender: FDA-Public Use
  Company Number: JP-JNJFOC-20170711042

PATIENT
  Age: 66 Year
  Sex: Male
  Weight: 52 kg

DRUGS (6)
  1. TENORMIN [Concomitant]
     Active Substance: ATENOLOL
     Indication: HEART RATE ABNORMAL
     Route: 048
     Dates: start: 200509
  2. VERAPAMIL HYDROCHLORIDE. [Concomitant]
     Active Substance: VERAPAMIL HYDROCHLORIDE
     Indication: HEART RATE ABNORMAL
     Route: 048
     Dates: start: 200509
  3. RIVAROXABAN [Suspect]
     Active Substance: RIVAROXABAN
     Indication: THROMBOSIS PROPHYLAXIS
     Route: 048
     Dates: start: 20151014, end: 20151111
  4. PREMINENT [Concomitant]
     Active Substance: HYDROCHLOROTHIAZIDE\LOSARTAN POTASSIUM
     Indication: BLOOD PRESSURE MANAGEMENT
     Route: 048
     Dates: start: 200509
  5. RIVAROXABAN [Suspect]
     Active Substance: RIVAROXABAN
     Indication: ATRIAL FIBRILLATION
     Route: 048
     Dates: start: 20151014, end: 20151111
  6. BAYASPIRIN [Concomitant]
     Active Substance: ASPIRIN
     Route: 048

REACTIONS (9)
  - Cholecystitis infective [Fatal]
  - Haemoptysis [Recovered/Resolved]
  - Squamous cell carcinoma of lung [Unknown]
  - Haemoptysis [Unknown]
  - Epistaxis [Unknown]
  - Melaena [Unknown]
  - Haemorrhoids [Unknown]
  - Prothrombin time prolonged [Unknown]
  - White blood cell count increased [Unknown]

NARRATIVE: CASE EVENT DATE: 201511
